FAERS Safety Report 10706548 (Version 1)
Quarter: 2015Q1

REPORT INFORMATION
  Report Type: Spontaneous
  Country: CA (occurrence: CA)
  Receive Date: 20150113
  Receipt Date: 20150113
  Transmission Date: 20150721
  Serious: Yes (Hospitalization)
  Sender: FDA-Public Use
  Company Number: PHHY2015CA000945

PATIENT
  Age: 70 Year
  Sex: Male

DRUGS (2)
  1. HEPARIN [Suspect]
     Active Substance: HEPARIN SODIUM
     Indication: ANTICOAGULANT THERAPY
     Dosage: 5000 IU, UNK
     Route: 042
  2. ASPIRIN. [Concomitant]
     Active Substance: ASPIRIN
     Indication: PRODUCT USED FOR UNKNOWN INDICATION
     Dosage: 80 MG, QD
     Route: 065

REACTIONS (8)
  - Diarrhoea haemorrhagic [Recovered/Resolved]
  - Aortic thrombosis [Recovering/Resolving]
  - Mesenteric artery thrombosis [Recovering/Resolving]
  - Intestinal ischaemia [Recovered/Resolved]
  - Heparin-induced thrombocytopenia [Recovering/Resolving]
  - Peripheral artery thrombosis [Recovering/Resolving]
  - Gastrointestinal oedema [Recovered/Resolved]
  - Malaise [Recovered/Resolved]
